FAERS Safety Report 15355498 (Version 1)
Quarter: 2018Q3

REPORT INFORMATION
  Report Type: Spontaneous
  Country: US (occurrence: US)
  Receive Date: 20180830
  Receipt Date: 20180830
  Transmission Date: 20181010
  Serious: Yes (Life-Threatening, Hospitalization)
  Sender: FDA-Public Use
  Company Number: None

PATIENT
  Age: 52 Year
  Sex: Female
  Weight: 62.2 kg

DRUGS (1)
  1. OCTAGAM IMMUNE GLOBULIN (HUMAN) [Suspect]
     Active Substance: HUMAN IMMUNOGLOBULIN G
     Indication: MYASTHENIA GRAVIS
     Route: 042
     Dates: start: 20180815, end: 20180820

REACTIONS (6)
  - Pulmonary mass [None]
  - Cerebral infarction [None]
  - Pulmonary thrombosis [None]
  - Facial paralysis [None]
  - Product quality issue [None]
  - Neurological symptom [None]

NARRATIVE: CASE EVENT DATE: 20180820
